FAERS Safety Report 26153334 (Version 1)
Quarter: 2025Q4

REPORT INFORMATION
  Report Type: Spontaneous
  Country: US (occurrence: US)
  Receive Date: 20251214
  Receipt Date: 20251214
  Transmission Date: 20260117
  Serious: Yes (Hospitalization, Other)
  Sender: ANI
  Company Number: US-ANIPHARMA-2025-US-053219

PATIENT
  Sex: Female

DRUGS (1)
  1. CORTICOTROPIN [Suspect]
     Active Substance: CORTICOTROPIN
     Indication: Rheumatoid arthritis
     Dosage: 80 UNITS TWICE WEEKLY.
     Route: 058
     Dates: start: 20251109

REACTIONS (4)
  - Hospitalisation [Recovered/Resolved]
  - Cerebrovascular accident [Unknown]
  - Cardiac disorder [Unknown]
  - Product dose omission issue [Unknown]
